FAERS Safety Report 5453544-8 (Version None)
Quarter: 2007Q3

REPORT INFORMATION
  Report Type: 
  Country: None (occurrence: None)
  Receive Date: 20070913
  Receipt Date: 20070905
  Transmission Date: 20080115
  Serious: Yes (Death, Hospitalization)
  Sender: FDA-Public Use
  Company Number: 430005M07FRA

PATIENT
  Age: 22 Year
  Sex: Female

DRUGS (11)
  1. NOVANTRONE [Suspect]
     Indication: ACUTE LYMPHOCYTIC LEUKAEMIA
     Dosage: 12 MG/M2, 1 IN 1 DAYS, INTRAVENOUS (NOT OTHERWISE SPECIFIED)
     Route: 042
     Dates: start: 20060630, end: 20060706
  2. DAUNORUBICIN HCL [Suspect]
     Indication: ACUTE LYMPHOCYTIC LEUKAEMIA
     Dosage: 60 MG/M2, INTRAVENOUS (NOT OTHERWISE SPECIFIED)
     Route: 042
     Dates: start: 20060628, end: 20060712
  3. AMOXICILLIN [Concomitant]
  4. ACYCLOVIR [Concomitant]
  5. FLUCONAZOLE [Concomitant]
  6. PENTAMIDINE ISETHIONATE [Concomitant]
  7. LIORESAL [Concomitant]
  8. ALODONT [Concomitant]
  9. LUTENYL    (NOMEGESTROL ACETATE) [Concomitant]
  10. LEXOMIL           (BROMAZEPAM) [Concomitant]
  11. CYCLOSPORINE [Concomitant]

REACTIONS (6)
  - BONE MARROW FAILURE [None]
  - DIARRHOEA [None]
  - DISEASE PROGRESSION [None]
  - HEPATORENAL SYNDROME [None]
  - HYPERTHERMIA [None]
  - SEPTIC SHOCK [None]
